FAERS Safety Report 16046522 (Version 1)
Quarter: 2019Q2

REPORT INFORMATION
  Report Type: Spontaneous
  Country: US (occurrence: US)
  Receive Date: 20190307
  Receipt Date: 20190307
  Transmission Date: 20190711
  Serious: Yes (Life-Threatening, Disabling, Other)
  Sender: FDA-Public Use
  Company Number: None

PATIENT
  Age: 62 Year
  Sex: Female
  Weight: 43.2 kg

DRUGS (6)
  1. MUTIVITAMIN [Concomitant]
  2. OMEGA 3, 6, 9 [Concomitant]
  3. VITAMIN B12 [Concomitant]
     Active Substance: CYANOCOBALAMIN
  4. XANAX [Concomitant]
     Active Substance: ALPRAZOLAM
  5. CALCIUM [Concomitant]
     Active Substance: CALCIUM
  6. ZUBSOLV [Suspect]
     Active Substance: BUPRENORPHINE HYDROCHLORIDE\NALOXONE HYDROCHLORIDE
     Indication: PAIN
     Dosage: ?          QUANTITY:2 TABLET(S);?
     Route: 060
     Dates: start: 20190224, end: 20190301

REACTIONS (2)
  - Psychotic disorder [None]
  - Product use complaint [None]

NARRATIVE: CASE EVENT DATE: 20190301
